FAERS Safety Report 4496241-8 (Version None)
Quarter: 2004Q4

REPORT INFORMATION
  Report Type: 
  Country: None (occurrence: None)
  Receive Date: 20041109
  Receipt Date: 20041028
  Transmission Date: 20050328
  Serious: Yes (Other)
  Sender: FDA-Public Use
  Company Number: US-JNJFOC-20041100274

PATIENT
  Sex: Female
  Weight: 46.72 kg

DRUGS (13)
  1. INFLIXIMAB [Suspect]
     Indication: RHEUMATOID ARTHRITIS
     Route: 042
  2. LOTREL [Concomitant]
  3. LOTREL [Concomitant]
     Dosage: 5/20 MG DAILY
  4. HYDROCHLOROTHIAZIDE [Concomitant]
  5. PREDNISONE [Concomitant]
  6. FOLIC ACID [Concomitant]
  7. AVANDIA [Concomitant]
  8. ULTRACET [Concomitant]
  9. METFORMIN [Concomitant]
  10. METHOTREXATE [Concomitant]
  11. FOSAMAX [Concomitant]
  12. VITAMIN B6 [Concomitant]
  13. ZOCOR [Concomitant]

REACTIONS (1)
  - SQUAMOUS CELL CARCINOMA OF SKIN [None]
